FAERS Safety Report 24380398 (Version 2)
Quarter: 2024Q4

REPORT INFORMATION
  Report Type: Spontaneous
  Country: US (occurrence: US)
  Receive Date: 20240930
  Receipt Date: 20241111
  Transmission Date: 20250115
  Serious: No
  Sender: SANOFI AVENTIS
  Company Number: US-SA-2024SA281051

PATIENT
  Age: 65 Year
  Sex: Male

DRUGS (1)
  1. LANTUS SOLOSTAR [Suspect]
     Active Substance: INSULIN GLARGINE
     Indication: Proteinuria
     Dosage: 65 U, QD
     Route: 058

REACTIONS (3)
  - Nasopharyngitis [Unknown]
  - Memory impairment [Unknown]
  - Off label use [Unknown]
